FAERS Safety Report 10204382 (Version 2)
Quarter: 2014Q2

REPORT INFORMATION
  Report Type: Spontaneous
  Country: JP (occurrence: JP)
  Receive Date: 20140529
  Receipt Date: 20140603
  Transmission Date: 20141212
  Serious: Yes (Death, Other)
  Sender: FDA-Public Use
  Company Number: JP-PFIZER INC-2014141221

PATIENT
  Age: 83 Year
  Sex: Female

DRUGS (1)
  1. ZYVOX [Suspect]
     Indication: STAPHYLOCOCCAL SEPSIS
     Dosage: 600 MG, DAILY
     Route: 041
     Dates: start: 20140424, end: 20140507

REACTIONS (2)
  - Disseminated intravascular coagulation [Fatal]
  - Platelet count decreased [Not Recovered/Not Resolved]
